FAERS Safety Report 6204623-9 (Version None)
Quarter: 2009Q2

REPORT INFORMATION
  Report Type: 
  Country: None (occurrence: None)
  Receive Date: 20090527
  Receipt Date: 20090515
  Transmission Date: 20091009
  Serious: Yes (Life-Threatening)
  Sender: FDA-Public Use
  Company Number: GB-PFIZER INC-2009213582

PATIENT
  Age: 52 Year

DRUGS (11)
  1. LYRICA [Suspect]
     Route: 048
  2. BACLOFEN [Concomitant]
  3. BENDROFLUAZIDE [Concomitant]
  4. FLUOXETINE [Concomitant]
  5. FLUTICASONE [Concomitant]
  6. LACTULOSE [Concomitant]
  7. NULYTELY [Concomitant]
  8. OMEPRAZOLE [Concomitant]
  9. OXYCONTIN [Concomitant]
  10. SALBUTAMOL [Concomitant]
  11. LEVOTHYROXINE SODIUM [Concomitant]

REACTIONS (2)
  - LOSS OF CONSCIOUSNESS [None]
  - VOMITING [None]
